FAERS Safety Report 8036978-7 (Version None)
Quarter: 2012Q1

REPORT INFORMATION
  Report Type: 
  Country: None (occurrence: None)
  Receive Date: 20120111
  Receipt Date: 20120110
  Transmission Date: 20120608
  Serious: Yes (Death)
  Sender: FDA-Public Use
  Company Number: US-PFIZER INC-2012003398

PATIENT
  Sex: Male

DRUGS (11)
  1. SORAFENIB TOSILATE [Suspect]
     Dosage: 200 MG, 2 TABLETS TWICE DAILY
     Route: 048
  2. METOPROLOL [Concomitant]
     Dosage: 25 MG, UNK
  3. ACETYLSALICYLIC ACID [Concomitant]
     Dosage: 81 MG, UNK
  4. HYDROXYUREA [Concomitant]
     Dosage: 500 MG, UNK
  5. LOVAZA [Concomitant]
     Dosage: UNK
  6. SIMVASTATIN [Concomitant]
     Dosage: 10 MG, UNK
  7. LEVOTHYROXINE [Concomitant]
     Dosage: 25 UG, UNK
  8. AVODART [Concomitant]
     Dosage: 0.5 MG, UNK
  9. SUTENT [Suspect]
     Dosage: 12.5 MG, UNK
  10. ACIPHEX [Concomitant]
     Dosage: 20 MG, UNK
  11. FISH OIL [Concomitant]
     Dosage: UNK

REACTIONS (2)
  - DISEASE PROGRESSION [None]
  - RENAL CANCER METASTATIC [None]
